FAERS Safety Report 13959292 (Version 1)
Quarter: 2017Q3

REPORT INFORMATION
  Report Type: Spontaneous
  Country: US (occurrence: US)
  Receive Date: 20170912
  Receipt Date: 20170912
  Transmission Date: 20171128
  Serious: Yes (Other)
  Sender: FDA-Public Use
  Company Number: US-APOTEX-2017AP017769

PATIENT
  Age: 63 Year
  Sex: Female

DRUGS (9)
  1. VALGANCICLOVIR. [Suspect]
     Active Substance: VALGANCICLOVIR
     Indication: CYTOMEGALOVIRUS INFECTION
     Route: 065
  2. TRIMETHOPRIM SULFAMETHOXAZOLE [Suspect]
     Active Substance: SULFAMETHOXAZOLE\TRIMETHOPRIM
     Indication: PRODUCT USED FOR UNKNOWN INDICATION
     Route: 065
  3. CYTARABINE. [Concomitant]
     Active Substance: CYTARABINE
     Indication: CHEMOTHERAPY
     Route: 065
  4. TACROLIMUS. [Suspect]
     Active Substance: TACROLIMUS
     Indication: GRAFT VERSUS HOST DISEASE
     Route: 065
  5. DECITABINE. [Concomitant]
     Active Substance: DECITABINE
     Indication: CHEMOTHERAPY
     Route: 065
  6. FOSCARNET [Concomitant]
     Active Substance: FOSCARNET
     Indication: CYTOMEGALOVIRUS INFECTION
     Route: 065
  7. IDARUBICIN [Concomitant]
     Active Substance: IDARUBICIN
     Indication: CHEMOTHERAPY
     Route: 065
  8. LOW MOLECULAR WEIGHT HEPARIN [Concomitant]
     Active Substance: UNSPECIFIED INGREDIENT
     Indication: DEEP VEIN THROMBOSIS
  9. MYCOPHENOLATE MOFETIL. [Suspect]
     Active Substance: MYCOPHENOLATE MOFETIL
     Indication: GRAFT VERSUS HOST DISEASE
     Route: 065

REACTIONS (1)
  - Thrombocytopenia [Recovering/Resolving]
